FAERS Safety Report 7512138-0 (Version None)
Quarter: 2011Q2

REPORT INFORMATION
  Report Type: 
  Country: None (occurrence: None)
  Receive Date: 20110531
  Receipt Date: 20110519
  Transmission Date: 20111010
  Serious: Yes (Hospitalization, Other)
  Sender: FDA-Public Use
  Company Number: CH-ASTRAZENECA-2011SE31244

PATIENT
  Age: 60 Year
  Sex: Female
  Weight: 84 kg

DRUGS (8)
  1. PRAMIPEXOLE DIHYCHLLORIDE [Interacting]
     Indication: POLYNEUROPATHY
     Route: 048
     Dates: start: 20101228, end: 20110504
  2. BILOL [Concomitant]
     Indication: ESSENTIAL HYPERTENSION
     Dosage: 1 PER DAY
     Route: 048
  3. PAROXETINE HCL [Concomitant]
     Indication: AFFECTIVE DISORDER
     Dosage: 1 PER DAY
     Route: 048
     Dates: start: 20110504
  4. SEROQUEL XR [Interacting]
     Route: 048
     Dates: start: 20110430, end: 20110504
  5. ATACAND HCT [Concomitant]
     Indication: ESSENTIAL HYPERTENSION
     Dosage: 16/12.5 MG DAILY
     Route: 048
  6. DIAMICRON [Concomitant]
     Indication: TYPE 2 DIABETES MELLITUS
     Dosage: 2 PER DAY
     Route: 048
     Dates: start: 20110504
  7. LITHIUM CARBONATE [Interacting]
     Indication: MANIA
     Route: 048
     Dates: start: 20110107, end: 20110430
  8. SEROQUEL XR [Suspect]
     Indication: MANIA
     Route: 048
     Dates: start: 20110101

REACTIONS (11)
  - ELECTROCARDIOGRAM QT INTERVAL ABNORMAL [None]
  - CONFUSIONAL STATE [None]
  - TREMOR [None]
  - ACCIDENTAL OVERDOSE [None]
  - DRUG INTERACTION [None]
  - BUNDLE BRANCH BLOCK [None]
  - GAIT DISTURBANCE [None]
  - DRUG LEVEL INCREASED [None]
  - DYSKINESIA [None]
  - HYPERHIDROSIS [None]
  - RENAL FAILURE ACUTE [None]
